FAERS Safety Report 6417051-8 (Version None)
Quarter: 2009Q4

REPORT INFORMATION
  Report Type: 
  Country: None (occurrence: None)
  Receive Date: 20091026
  Receipt Date: 20091015
  Transmission Date: 20100525
  Serious: Yes (Death)
  Sender: FDA-Public Use
  Company Number: GXKR2009GB11398

PATIENT
  Age: 34 Year
  Sex: Male
  Weight: 123 kg

DRUGS (12)
  1. AMISULPRIDE (NGX) (AMISULPRIDE) UNKNOWN [Suspect]
     Dosage: 400 MG/DAY, ORAL
     Route: 048
  2. MIRTAZAPINE [Suspect]
     Dosage: 30 MG/DAY, ORAL
     Route: 048
  3. CLOZAPINE [Suspect]
     Indication: SCHIZOPHRENIA
     Dosage: 450 MG/DAY (150 MG MANE AND 300 MG NOCTE),  ORAL
     Route: 048
     Dates: start: 20070411, end: 20090422
  4. ATROPINE SULFATE [Concomitant]
  5. BECLOMETHASONE DIPROPIONATE [Concomitant]
  6. FYBOGEL (ISPAGHULA, PLANTAGO OVATA) [Concomitant]
  7. DILTIAZEM HCL [Concomitant]
  8. HALOPERIDOL [Concomitant]
  9. HYOSCINE HYDROBROMIDE (HYOSCINE HYDROBROMIDE) [Concomitant]
  10. LISINOPRIL [Concomitant]
  11. METOPROLOL (METOPROLOL) [Concomitant]
  12. SENNA (SENNA, SENNA ALEXANDRIA) [Concomitant]

REACTIONS (2)
  - DEEP VEIN THROMBOSIS [None]
  - PULMONARY EMBOLISM [None]
